FAERS Safety Report 21551477 (Version 1)
Quarter: 2022Q4

REPORT INFORMATION
  Report Type: Spontaneous
  Country: US (occurrence: US)
  Receive Date: 20221103
  Receipt Date: 20221103
  Transmission Date: 20230112
  Serious: No
  Sender: FDA-Public Use
  Company Number: US-JNJFOC-20221044587

PATIENT
  Sex: Male

DRUGS (2)
  1. BALVERSA [Suspect]
     Active Substance: ERDAFITINIB
     Indication: Product used for unknown indication
     Dosage: DATE OF ADMINISTRATION: 12/16/2021
     Route: 048
  2. BALVERSA [Suspect]
     Active Substance: ERDAFITINIB
     Dosage: DATE OF ADMINISTRATION: 12/16/2021?3MG  2 ONCE DAILY, DOSE CHANGE DUE TO THE SIDE EFFECTS
     Route: 048

REACTIONS (2)
  - Urinary tract infection [Unknown]
  - Adverse drug reaction [Unknown]
